FAERS Safety Report 7460043-0 (Version None)
Quarter: 2011Q2

REPORT INFORMATION
  Report Type: 
  Country: None (occurrence: None)
  Receive Date: 20110505
  Receipt Date: 20110423
  Transmission Date: 20111010
  Serious: Yes (Hospitalization)
  Sender: FDA-Public Use
  Company Number: PHFR2011GB02724

PATIENT
  Sex: Male

DRUGS (2)
  1. CLOZARIL [Suspect]
     Indication: SCHIZOPHRENIA
     Dosage: 350  MG
     Route: 048
     Dates: start: 20061211
  2. AMISULPRIDE [Suspect]
     Dosage: UNK

REACTIONS (3)
  - TACHYCARDIA [None]
  - MEDICATION ERROR [None]
  - PARANOIA [None]
